FAERS Safety Report 4564340-8 (Version None)
Quarter: 2005Q1

REPORT INFORMATION
  Report Type: 
  Country: None (occurrence: None)
  Receive Date: 20050128
  Receipt Date: 20050119
  Transmission Date: 20050727
  Serious: Yes (Other)
  Sender: FDA-Public Use
  Company Number: US-GLAXOSMITHKLINE-A0541324A

PATIENT
  Age: 45 Year
  Sex: Male

DRUGS (2)
  1. WELLBUTRIN [Suspect]
     Indication: DEPRESSION
     Dosage: 300MG PER DAY
     Route: 048
     Dates: start: 20041101
  2. TESTOSTERONE [Concomitant]

REACTIONS (5)
  - AGGRESSION [None]
  - COPROLALIA [None]
  - IRRITABILITY [None]
  - JUDGEMENT IMPAIRED [None]
  - PERSONALITY CHANGE [None]
